FAERS Safety Report 5781236-4 (Version None)
Quarter: 2008Q2

REPORT INFORMATION
  Report Type: 
  Country: None (occurrence: None)
  Receive Date: 20080618
  Receipt Date: 20080605
  Transmission Date: 20081010
  Serious: Yes (Death)
  Sender: FDA-Public Use
  Company Number: 2008AL004821

PATIENT
  Age: 46 Year
  Sex: Male

DRUGS (13)
  1. DIGOXIN [Suspect]
     Indication: CARDIAC FAILURE CONGESTIVE
     Dosage: 0.25MG DAILY PO
     Route: 048
     Dates: start: 20041101, end: 20071228
  2. AMIODARONE HCL [Concomitant]
  3. ASPIRIN [Concomitant]
  4. COREG [Concomitant]
  5. FOLIC ACID [Concomitant]
  6. FUROSEMIDE [Concomitant]
  7. GLYBURIDE [Concomitant]
  8. LISINOPRIL [Concomitant]
  9. NEXIUM [Concomitant]
  10. SPIRONOLACTONE [Concomitant]
  11. THEOPHYLLINE [Concomitant]
  12. MULTI-VITAMIN [Concomitant]
  13. ALBUTEROL [Concomitant]

REACTIONS (1)
  - DEATH [None]
